FAERS Safety Report 4818310-2 (Version None)
Quarter: 2005Q3

REPORT INFORMATION
  Report Type: 
  Country: None (occurrence: None)
  Receive Date: 20050929
  Receipt Date: 20050705
  Transmission Date: 20060218
  Serious: No
  Sender: FDA-Public Use
  Company Number: 05P-163-0304888-00

PATIENT
  Age: 75 Year
  Sex: Female
  Weight: 63.5036 kg

DRUGS (10)
  1. HUMIRA [Suspect]
     Indication: RHEUMATOID ARTHRITIS
     Dosage: 40 MG, 1 IN 2 WK, SUBCUTANEOUS
     Route: 058
     Dates: start: 20050501
  2. BRIMONIDINE TARTRATE [Concomitant]
  3. ENALAPRIL MALEATE [Concomitant]
  4. GLIBENCLAMIDE [Concomitant]
  5. AMLODIPINE BESYLATE [Concomitant]
  6. PREDNISONE [Concomitant]
  7. PAROXETINE HCL [Concomitant]
  8. HYDROXYCHLOROQUINE PHOSPHATE [Concomitant]
  9. METHOTREXATE [Concomitant]
  10. DICLOFENAC SODIUM [Concomitant]

REACTIONS (4)
  - ECCHYMOSIS [None]
  - ERYTHEMA [None]
  - SKIN LESION [None]
  - WEIGHT INCREASED [None]
